FAERS Safety Report 6168971-3 (Version None)
Quarter: 2009Q2

REPORT INFORMATION
  Report Type: 
  Country: None (occurrence: None)
  Receive Date: 20090424
  Receipt Date: 20090424
  Transmission Date: 20091009
  Serious: Yes (Other)
  Sender: FDA-Public Use
  Company Number: None

PATIENT
  Age: 41 Year
  Sex: Female
  Weight: 61.2356 kg

DRUGS (1)
  1. MIRENA [Suspect]
     Indication: CONTRACEPTION
     Dates: start: 20090413, end: 20090418

REACTIONS (5)
  - ACNE CYSTIC [None]
  - FATIGUE [None]
  - INFLAMMATION [None]
  - PRURITUS [None]
  - RASH [None]
